FAERS Safety Report 8501062-2 (Version None)
Quarter: 2012Q2

REPORT INFORMATION
  Report Type: 
  Country: None (occurrence: None)
  Receive Date: 20120629
  Receipt Date: 20120614
  Transmission Date: 20120825
  Serious: Yes (Hospitalization)
  Sender: FDA-Public Use
  Company Number: 2012-2794

PATIENT
  Sex: Female

DRUGS (1)
  1. SOMATULINE DEPOT [Suspect]
     Indication: PITUITARY TUMOUR
     Dosage: 90 MG (90 MG, 1 IN 28 D), SUBCUTANEOUS
     Route: 058
     Dates: start: 20110409, end: 20120509

REACTIONS (2)
  - PITUITARY TUMOUR [None]
  - NEOPLASM PROGRESSION [None]
